FAERS Safety Report 24632030 (Version 2)
Quarter: 2025Q4

REPORT INFORMATION
  Report Type: Spontaneous
  Country: US (occurrence: US)
  Receive Date: 20241118
  Receipt Date: 20251219
  Transmission Date: 20260118
  Serious: Yes (Other)
  Sender: SANOFI AVENTIS
  Company Number: US-SA-2024SA334506

PATIENT
  Age: 73 Year
  Sex: Male

DRUGS (1)
  1. DUPIXENT [Suspect]
     Active Substance: DUPILUMAB
     Indication: Asthma
     Dosage: 300 MG, QOW
     Route: 058
     Dates: start: 202402

REACTIONS (5)
  - Bronchiectasis [Unknown]
  - Productive cough [Unknown]
  - Condition aggravated [Unknown]
  - Asthma [Unknown]
  - Asthma [Unknown]

NARRATIVE: CASE EVENT DATE: 20240101
